FAERS Safety Report 4440529-3 (Version None)
Quarter: 2004Q3

REPORT INFORMATION
  Report Type: 
  Country: None (occurrence: None)
  Receive Date: 20040826
  Receipt Date: 20030708
  Transmission Date: 20050211
  Serious: Yes (Hospitalization, Other)
  Sender: FDA-Public Use
  Company Number: 2003-05699

PATIENT
  Age: 43 Year
  Sex: Female
  Weight: 50.6668 kg

DRUGS (13)
  1. VISTIDE [Suspect]
     Indication: DRUG USE FOR UNKNOWN INDICATION
     Dosage: 1 %, ONCE A DAY, TOPICAL
     Route: 061
     Dates: start: 20030622, end: 20030626
  2. KALETRA [Concomitant]
  3. EPIVIR [Concomitant]
  4. ZIAGEN [Concomitant]
  5. VIRAMUNE [Concomitant]
  6. DAPSONE [Concomitant]
  7. AZITHROMYCIN [Concomitant]
  8. CIPRO [Concomitant]
  9. QUESTRAN [Concomitant]
  10. ERYTHROPOIETIN (ERYTHROPOIETIN) [Concomitant]
  11. PROVIGIL [Concomitant]
  12. PAXIL [Concomitant]
  13. PREVACID [Concomitant]

REACTIONS (1)
  - RENAL FAILURE [None]
